FAERS Safety Report 14033546 (Version 1)
Quarter: 2017Q4

REPORT INFORMATION
  Report Type: Report from Study
  Country: IT (occurrence: IT)
  Receive Date: 20171003
  Receipt Date: 20171003
  Transmission Date: 20180321
  Serious: Yes (Other)
  Sender: FDA-Public Use
  Company Number: IT-ACTELION-A-CH2017-159835

PATIENT
  Age: 12 Year
  Sex: Female

DRUGS (4)
  1. ZAVESCA [Suspect]
     Active Substance: MIGLUSTAT
     Dosage: 270 MG, TID
     Route: 048
     Dates: start: 20140121
  2. ZAVESCA [Suspect]
     Active Substance: MIGLUSTAT
     Indication: NIEMANN-PICK DISEASE
     Dosage: 100 MG, TID
     Route: 048
     Dates: start: 20050630
  3. ZAVESCA [Suspect]
     Active Substance: MIGLUSTAT
     Dosage: 300 MG, TID
     Route: 048
     Dates: start: 20170913
  4. ZAVESCA [Suspect]
     Active Substance: MIGLUSTAT
     Dosage: 275 MG, TID
     Route: 048
     Dates: start: 20140929

REACTIONS (1)
  - Seizure [Unknown]
